FAERS Safety Report 4884888-6 (Version None)
Quarter: 2006Q1

REPORT INFORMATION
  Report Type: 
  Country: None (occurrence: None)
  Receive Date: 20060119
  Receipt Date: 20060105
  Transmission Date: 20060701
  Serious: Yes (Hospitalization)
  Sender: FDA-Public Use
  Company Number: CH-BRISTOL-MYERS SQUIBB COMPANY-13239025

PATIENT
  Age: 65 Year
  Sex: Female
  Weight: 59 kg

DRUGS (19)
  1. MAXIPIME [Suspect]
     Route: 041
     Dates: start: 20050806, end: 20050808
  2. FUNGIZONE [Suspect]
     Route: 041
     Dates: start: 20050829, end: 20050906
  3. CYTOSAR [Suspect]
     Indication: ACUTE MYELOID LEUKAEMIA
     Route: 041
     Dates: start: 20050810, end: 20050816
  4. TAZOBAC [Suspect]
     Route: 041
     Dates: start: 20050809, end: 20050811
  5. MERONEM [Suspect]
     Route: 041
     Dates: start: 20050811, end: 20050824
  6. SEROPRAM [Suspect]
     Route: 048
     Dates: start: 20050811, end: 20050906
  7. TIATRAL [Concomitant]
     Route: 048
     Dates: end: 20050803
  8. METFORMIN HCL [Concomitant]
     Indication: DIABETES MELLITUS NON-INSULIN-DEPENDENT
     Route: 048
     Dates: end: 20050810
  9. SIMVASTATIN [Concomitant]
     Route: 048
     Dates: end: 20050814
  10. INSULIN [Concomitant]
     Indication: DIABETES MELLITUS NON-INSULIN-DEPENDENT
     Route: 058
  11. ZYLORIC [Concomitant]
     Route: 048
     Dates: start: 20050803, end: 20050818
  12. CERUBIDINE [Concomitant]
     Indication: ACUTE MYELOID LEUKAEMIA
     Route: 041
     Dates: start: 20050810, end: 20050812
  13. AMIKIN [Concomitant]
     Route: 041
     Dates: start: 20050806, end: 20050808
  14. VALTREX [Concomitant]
     Route: 048
     Dates: start: 20050805, end: 20050831
  15. FLAGYL [Concomitant]
     Route: 048
     Dates: start: 20050819, end: 20050901
  16. KONAKION [Concomitant]
     Route: 048
     Dates: start: 20050822
  17. KALIUM [Concomitant]
     Route: 048
     Dates: start: 20050823
  18. URSO FALK [Concomitant]
     Route: 048
     Dates: start: 20050825, end: 20050906
  19. PADMA [Concomitant]
     Route: 048
     Dates: end: 20050803

REACTIONS (3)
  - CHOLESTASIS [None]
  - GAMMA-GLUTAMYLTRANSFERASE INCREASED [None]
  - HYPERBILIRUBINAEMIA [None]
